FAERS Safety Report 4715433-3 (Version None)
Quarter: 2005Q3

REPORT INFORMATION
  Report Type: 
  Country: None (occurrence: None)
  Receive Date: 20050713
  Receipt Date: 20050630
  Transmission Date: 20060218
  Serious: Yes (Other)
  Sender: FDA-Public Use
  Company Number: 2005095339

PATIENT
  Sex: Male
  Weight: 79.8331 kg

DRUGS (2)
  1. VIAGRA [Suspect]
     Indication: ERECTILE DYSFUNCTION
     Dosage: (100 MG), ORAL
     Route: 048
  2. ALL OTHER THERAPEUTIC PRODUCTS (ALL OTHER THERAPETUCIC PRODUCTS) [Concomitant]

REACTIONS (12)
  - ABDOMINAL PAIN UPPER [None]
  - ANGIOPLASTY [None]
  - CARDIAC PACEMAKER MALFUNCTION [None]
  - CORONARY ARTERY OCCLUSION [None]
  - DISEASE RECURRENCE [None]
  - DYSPEPSIA [None]
  - FAT EMBOLISM [None]
  - HEADACHE [None]
  - HIATUS HERNIA [None]
  - MALAISE [None]
  - SELF-MEDICATION [None]
  - VISION BLURRED [None]
